FAERS Safety Report 6645104-8 (Version None)
Quarter: 2010Q1

REPORT INFORMATION
  Report Type: 
  Country: None (occurrence: None)
  Receive Date: 20100322
  Receipt Date: 20100311
  Transmission Date: 20100710
  Serious: Yes (Other)
  Sender: FDA-Public Use
  Company Number: US-JNJCH-2010006726

PATIENT
  Age: 73 Year
  Sex: Female

DRUGS (4)
  1. BENADRYL [Suspect]
     Indication: MASTOCYTOSIS
     Dosage: TEXT:ONE OR TWO KAPSEALS; 3-4 TIMES A DAY
     Route: 048
  2. BENADRYL [Suspect]
     Dosage: TEXT:ONE OR TWO TABLETS; 3-4 TIMES A DAY
     Route: 048
  3. BENADRYL ALLERGY KAPGELS [Suspect]
     Indication: MASTOCYTOSIS
     Dosage: TEXT:ONE OR TWO KAPSGELS; 3-4 TIMES A DAY
     Route: 048
  4. DIPHENHYDRAMINE HYDROCHLORIDE [Suspect]
     Indication: MASTOCYTOSIS
     Dosage: TEXT:ONE TABLET; 3-4 TIMES A DAY
     Route: 048

REACTIONS (2)
  - AMNESIA [None]
  - OFF LABEL USE [None]
